FAERS Safety Report 18748053 (Version 3)
Quarter: 2022Q1

REPORT INFORMATION
  Report Type: Spontaneous
  Country: PL (occurrence: PL)
  Receive Date: 20210116
  Receipt Date: 20220315
  Transmission Date: 20220423
  Serious: Yes (Hospitalization, Other)
  Sender: FDA-Public Use
  Company Number: PL-JNJFOC-20201254639

PATIENT
  Age: 69 Year
  Sex: Female

DRUGS (11)
  1. METOPROLOL [Interacting]
     Active Substance: METOPROLOL
     Indication: Product used for unknown indication
     Dosage: 100 MILLIGRAM, ONCE A DAY
     Route: 065
  2. ROSUVASTATIN [Suspect]
     Active Substance: ROSUVASTATIN
     Indication: Product used for unknown indication
     Dosage: 10 MILLIGRAM, ONCE A DAY
     Route: 065
  3. ASPIRIN [Interacting]
     Active Substance: ASPIRIN
     Indication: Infection
     Dosage: UNK
     Route: 065
  4. AMLODIPINE\INDAPAMIDE\PERINDOPRIL [Suspect]
     Active Substance: AMLODIPINE\INDAPAMIDE\PERINDOPRIL
     Indication: Product used for unknown indication
     Dosage: ONE DOSE DAILY IN THE MORNING
     Route: 065
  5. DABIGATRAN [Interacting]
     Active Substance: DABIGATRAN
     Indication: Ischaemic heart disease prophylaxis
     Dosage: 300 MILLIGRAM, ONCE A DAY
     Route: 065
  6. KETOPROFEN [Suspect]
     Active Substance: KETOPROFEN
     Indication: Arthralgia
     Dosage: UNK, TAKEN AT TIMES
     Route: 065
  7. NIMESULIDE [Suspect]
     Active Substance: NIMESULIDE
     Indication: Antiinflammatory therapy
     Dosage: 100 MILLIGRAM, TWO TIMES A DAY
     Route: 065
  8. NIMESULIDE [Suspect]
     Active Substance: NIMESULIDE
     Indication: Pain
     Dosage: UNK
     Route: 065
  9. PROPAFENONE [Interacting]
     Active Substance: PROPAFENONE
     Indication: Arrhythmia prophylaxis
     Dosage: 300 MILLIGRAM, AS NECESSARY
     Route: 065
  10. SPORANOX [Interacting]
     Active Substance: ITRACONAZOLE
     Indication: Tinea versicolour
     Dosage: 200 MILLIGRAM, ONCE A DAY
     Route: 065
  11. SPORANOX [Suspect]
     Active Substance: ITRACONAZOLE
     Indication: Tinea versicolour
     Dosage: 200 MILLIGRAM, ONCE A DAY
     Route: 048

REACTIONS (6)
  - Bradycardia [Recovered/Resolved]
  - Anaemia [Recovered/Resolved]
  - Syncope [Recovered/Resolved]
  - Gastrointestinal haemorrhage [Recovered/Resolved]
  - Asthenia [Recovered/Resolved]
  - Drug interaction [Recovered/Resolved]
